FAERS Safety Report 19461169 (Version 1)
Quarter: 2021Q2

REPORT INFORMATION
  Report Type: Spontaneous
  Country: CN (occurrence: CN)
  Receive Date: 20210625
  Receipt Date: 20210625
  Transmission Date: 20210717
  Serious: Yes (Other)
  Sender: FDA-Public Use
  Company Number: CN-ROCHE-2854367

PATIENT
  Age: 65 Year
  Sex: Male
  Weight: 63 kg

DRUGS (2)
  1. BENDAMUSTINE [Concomitant]
     Active Substance: BENDAMUSTINE
     Indication: B-CELL LYMPHOMA STAGE IV
     Dosage: DAY1 TO DAY2,RB REGIMEN 1 CYCLE,
     Dates: start: 20210524, end: 20210526
  2. MABTHERA [Suspect]
     Active Substance: RITUXIMAB
     Indication: B-CELL LYMPHOMA STAGE IV
     Dosage: DAY0,RB REGIMEN 1 CYCLE
     Route: 042
     Dates: start: 20210524, end: 20210526

REACTIONS (5)
  - Anaemia [Unknown]
  - Off label use [Unknown]
  - Pneumonitis [Unknown]
  - Neutrophil count decreased [Unknown]
  - Platelet count decreased [Unknown]
